FAERS Safety Report 10214424 (Version 1)
Quarter: 2014Q2

REPORT INFORMATION
  Report Type: Spontaneous
  Country: ZA (occurrence: ZA)
  Receive Date: 20140603
  Receipt Date: 20140603
  Transmission Date: 20141212
  Serious: Yes (Hospitalization)
  Sender: FDA-Public Use
  Company Number: ZA-SA-2014SA068517

PATIENT
  Age: 34 Year
  Sex: Male
  Weight: 65 kg

DRUGS (6)
  1. DOCETERE [Suspect]
     Indication: BREAST CANCER
     Route: 042
     Dates: start: 20140515
  2. DEXONA [Concomitant]
     Indication: BREAST CANCER
     Route: 042
     Dates: start: 20140515
  3. ONICIT [Concomitant]
     Indication: BREAST CANCER
     Route: 042
     Dates: start: 20140515
  4. PHENERGAN [Concomitant]
     Indication: BREAST CANCER
     Route: 042
     Dates: start: 20140515
  5. MEDROL [Concomitant]
     Indication: BREAST CANCER
     Dosage: DAY 1-4 PER OS
     Route: 048
     Dates: start: 20140515, end: 20140518
  6. EMEND [Concomitant]
     Indication: BREAST CANCER
     Dosage: DOSE: 125/80/80 MG?DAY 1-3 PER OS
     Route: 048
     Dates: start: 20140515, end: 20140517

REACTIONS (10)
  - Neutropenic sepsis [Recovering/Resolving]
  - Peripheral swelling [Recovering/Resolving]
  - Pain in extremity [Recovering/Resolving]
  - Erythema [Recovering/Resolving]
  - Gait disturbance [Recovering/Resolving]
  - Pain [Recovering/Resolving]
  - Peripheral swelling [None]
  - Peripheral swelling [None]
  - Pain in extremity [None]
  - Pain in extremity [None]
